FAERS Safety Report 16089607 (Version 1)
Quarter: 2019Q1

REPORT INFORMATION
  Report Type: Spontaneous
  Country: FR (occurrence: FR)
  Receive Date: 20190319
  Receipt Date: 20190319
  Transmission Date: 20190418
  Serious: Yes (Other)
  Sender: FDA-Public Use
  Company Number: FR-PFIZER INC-2019110504

PATIENT
  Sex: Female

DRUGS (3)
  1. IBUPROFEN. [Suspect]
     Active Substance: IBUPROFEN
     Indication: TOOTH ABSCESS
     Dosage: UNK
     Route: 048
  2. IBUPROFEN ARGININE [Suspect]
     Active Substance: IBUPROFEN ARGININE
     Indication: PAIN
     Dosage: UNK
     Route: 048
  3. AMOXICILLIN. [Suspect]
     Active Substance: AMOXICILLIN
     Indication: TOOTH ABSCESS
     Dosage: UNK
     Route: 048

REACTIONS (2)
  - Tooth abscess [Unknown]
  - Condition aggravated [Unknown]
